FAERS Safety Report 17904548 (Version 1)
Quarter: 2020Q2

REPORT INFORMATION
  Report Type: Spontaneous
  Country: US (occurrence: US)
  Receive Date: 20200617
  Receipt Date: 20200617
  Transmission Date: 20200714
  Serious: No
  Sender: FDA-Public Use
  Company Number: US-ACCORD-168540

PATIENT
  Age: 51 Year
  Sex: Female
  Weight: 75.3 kg

DRUGS (18)
  1. BUPROPION/BUPROPION HYDROCHLORIDE [Concomitant]
     Active Substance: BUPROPION HYDROCHLORIDE
  2. ESTRADIOL. [Concomitant]
     Active Substance: ESTRADIOL
  3. PREDNISONE. [Concomitant]
     Active Substance: PREDNISONE
  4. IRON [Concomitant]
     Active Substance: IRON
  5. KORLYM [Suspect]
     Active Substance: MIFEPRISTONE
     Indication: CUSHING^S SYNDROME
     Route: 048
     Dates: start: 20191029, end: 20191125
  6. PROGESTERONE. [Concomitant]
     Active Substance: PROGESTERONE
  7. KLONOPIN [Concomitant]
     Active Substance: CLONAZEPAM
  8. LISINOPRIL. [Concomitant]
     Active Substance: LISINOPRIL
  9. LEVOTHYROXINE. [Concomitant]
     Active Substance: LEVOTHYROXINE
  10. NALTREXONE [Concomitant]
     Active Substance: NALTREXONE
  11. COLECALCIFEROL [Concomitant]
     Active Substance: CHOLECALCIFEROL
  12. EFFEXOR [Concomitant]
     Active Substance: VENLAFAXINE HYDROCHLORIDE
  13. AMLODIPINE [Suspect]
     Active Substance: AMLODIPINE BESYLATE
     Indication: PRODUCT USED FOR UNKNOWN INDICATION
  14. KORLYM [Suspect]
     Active Substance: MIFEPRISTONE
     Indication: CUSHING^S SYNDROME
     Route: 048
     Dates: start: 20190923, end: 20191028
  15. TESTOSTERONE. [Concomitant]
     Active Substance: TESTOSTERONE
  16. KORLYM [Suspect]
     Active Substance: MIFEPRISTONE
     Indication: CUSHING^S SYNDROME
     Route: 048
     Dates: start: 20191126
  17. CYANOCOBALAMIN. [Concomitant]
     Active Substance: CYANOCOBALAMIN
  18. KORLYM [Suspect]
     Active Substance: MIFEPRISTONE
     Indication: CUSHING^S SYNDROME
     Route: 048
     Dates: start: 20191126

REACTIONS (9)
  - Psychomotor hyperactivity [Recovered/Resolved]
  - Fatigue [Unknown]
  - Nausea [Unknown]
  - Rash pruritic [Not Recovered/Not Resolved]
  - Incorrect dose administered [Unknown]
  - Peripheral swelling [Unknown]
  - Cortisol increased [Recovered/Resolved]
  - Hypophagia [Unknown]
  - Depressed mood [Recovering/Resolving]

NARRATIVE: CASE EVENT DATE: 20191126
